FAERS Safety Report 6407550-7 (Version None)
Quarter: 2009Q4

REPORT INFORMATION
  Report Type: 
  Country: None (occurrence: None)
  Receive Date: 20091020
  Receipt Date: 20091014
  Transmission Date: 20100525
  Serious: Yes (Other)
  Sender: FDA-Public Use
  Company Number: JP-B.I. PHARMACEUTICALS,INC./RIDGEFIELD-2009-DE-06527GD

PATIENT
  Age: 17 Year
  Sex: Female

DRUGS (1)
  1. DIPYRIDAMOLE [Suspect]

REACTIONS (1)
  - RENAL IMPAIRMENT [None]
